FAERS Safety Report 25251782 (Version 1)
Quarter: 2025Q2

REPORT INFORMATION
  Report Type: Spontaneous
  Country: US (occurrence: US)
  Receive Date: 20250429
  Receipt Date: 20250429
  Transmission Date: 20250716
  Serious: No
  Sender: TRAVERE THERAPEUTICS
  Company Number: US-TRAVERE-2025TVT00490

PATIENT
  Age: 61 Year
  Sex: Female

DRUGS (10)
  1. FILSPARI [Suspect]
     Active Substance: SPARSENTAN
     Indication: IgA nephropathy
     Route: 048
  2. TARPEYO [Suspect]
     Active Substance: BUDESONIDE
     Indication: Product used for unknown indication
  3. CARVEDILOL [Concomitant]
     Active Substance: CARVEDILOL
  4. FARXIGA [Concomitant]
     Active Substance: DAPAGLIFLOZIN PROPANEDIOL
  5. LOSARTAN [Concomitant]
     Active Substance: LOSARTAN
  6. AMLODIPINE [Concomitant]
     Active Substance: AMLODIPINE BESYLATE
  7. FLUTICASONE [Concomitant]
     Active Substance: FLUTICASONE
  8. ATORVASTATIN [Concomitant]
     Active Substance: ATORVASTATIN
  9. CHOLECALCIFEROL [Concomitant]
     Active Substance: CHOLECALCIFEROL
  10. INSULIN ASPART [Concomitant]
     Active Substance: INSULIN ASPART

REACTIONS (9)
  - Blood pressure increased [Unknown]
  - Pharyngitis [Unknown]
  - Blood glucose increased [Unknown]
  - Hypoaesthesia [Unknown]
  - Lymphadenitis [Unknown]
  - Paraesthesia [Unknown]
  - Peripheral swelling [Unknown]
  - Joint swelling [Unknown]
  - Contraindicated product administered [Unknown]
